FAERS Safety Report 4855997-2 (Version None)
Quarter: 2005Q4

REPORT INFORMATION
  Report Type: 
  Country: None (occurrence: None)
  Receive Date: 20051216
  Receipt Date: 20051208
  Transmission Date: 20060501
  Serious: Yes (Hospitalization)
  Sender: FDA-Public Use
  Company Number: US-JNJFOC-20051202849

PATIENT
  Sex: Male
  Weight: 89.36 kg

DRUGS (5)
  1. DURAGESIC-100 [Suspect]
     Route: 062
  2. FLEXERIL [Concomitant]
     Indication: PAIN
  3. IMITREX [Concomitant]
     Indication: MIGRAINE
     Dosage: UP TO 3 PILLS IN 24 HOURS
  4. PERCOCET [Concomitant]
  5. PERCOCET [Concomitant]
     Indication: PAIN
     Dosage: 10 MG EVERY 12 HOURS AS NEEDED

REACTIONS (2)
  - INTERVERTEBRAL DISC DEGENERATION [None]
  - INTERVERTEBRAL DISC PROTRUSION [None]
